FAERS Safety Report 8790201 (Version 2)
Quarter: 2012Q4

REPORT INFORMATION
  Report Type: 
  Country: AU (occurrence: AU)
  Receive Date: 20120917
  Receipt Date: 20120929
  Transmission Date: 20130627
  Serious: Yes (Death, Hospitalization, Other)
  Sender: FDA-Public Use
  Company Number: AU-B.I. PHARMACEUTICALS,INC./RIDGEFIELD-2012-AU-01604AU

PATIENT
  Age: 74 None
  Sex: Male

DRUGS (17)
  1. PRADAXA [Suspect]
     Indication: CEREBROVASCULAR ACCIDENT PROPHYLAXIS
     Dosage: 300 mg
     Dates: start: 20110725, end: 201109
  2. PRADAXA [Suspect]
     Indication: ATRIAL FIBRILLATION
  3. XARELTO [Suspect]
     Dates: start: 20120904
  4. WARFARIN [Suspect]
     Indication: ATRIAL FIBRILLATION
     Dates: start: 201109, end: 20120904
  5. RENITEC [Concomitant]
     Indication: HYPERTENSION
     Dosage: 20 mg
  6. RENITEC [Concomitant]
     Indication: CARDIAC FAILURE CONGESTIVE
  7. PARACETAMOL [Concomitant]
     Indication: NEURALGIA
     Dosage: 4 g
  8. TARGIN [Concomitant]
     Indication: PAIN
     Dosage: 10/5mg bd
  9. ENDONE [Concomitant]
     Indication: PAIN
     Dosage: 5mg prn
  10. LYRICA [Concomitant]
     Indication: PAIN
     Dosage: 150 mg
  11. LYRICA [Concomitant]
     Indication: LIMB REDUCTION DEFECT
  12. TEMAZEPAM [Concomitant]
     Dosage: 1-2 nocte prn
  13. SPIRONOLACTONE [Concomitant]
     Indication: CARDIAC FAILURE CONGESTIVE
     Dosage: 25 mg
  14. LASIX [Concomitant]
     Indication: CARDIAC FAILURE CONGESTIVE
     Dosage: 20-40mg variable prn
  15. METFORMIN XR [Concomitant]
     Indication: TYPE 2 DIABETES MELLITUS
     Dosage: 1000 mg
  16. ALLOPURINOL [Concomitant]
     Indication: GOUT
     Dosage: 300 mg
  17. SPIRIVA [Concomitant]
     Indication: CHRONIC OBSTRUCTIVE PULMONARY DISEASE
     Dosage: 300 mg

REACTIONS (9)
  - Haemorrhage intracranial [Fatal]
  - Skull fracture [Unknown]
  - Brain midline shift [Unknown]
  - Subdural haematoma [Unknown]
  - Cystitis [Unknown]
  - Cardiac failure congestive [Unknown]
  - Peripheral ischaemia [Unknown]
  - Localised infection [Unknown]
  - Fall [Unknown]
